FAERS Safety Report 25569473 (Version 1)
Quarter: 2025Q3

REPORT INFORMATION
  Report Type: Spontaneous
  Country: EU (occurrence: EU)
  Receive Date: 20250716
  Receipt Date: 20250716
  Transmission Date: 20251020
  Serious: Yes (Death, Life-Threatening, Hospitalization, Other)
  Sender: BRISTOL-MYERS SQUIBB COMPANY
  Company Number: EU-BRISTOL-MYERS SQUIBB COMPANY-2025-099525

PATIENT
  Age: 69 Year
  Sex: Male

DRUGS (1)
  1. FEDRATINIB [Suspect]
     Active Substance: FEDRATINIB
     Indication: Myelofibrosis
     Dosage: 400 MG/ DAILY, PER OS ONCE DAILY
     Route: 048
     Dates: start: 202407, end: 202409

REACTIONS (6)
  - Hepatic lesion [Fatal]
  - Hepatitis E [Fatal]
  - Generalised oedema [Fatal]
  - Acute hepatic failure [Fatal]
  - Cardiopulmonary failure [Fatal]
  - Disseminated intravascular coagulation [Fatal]

NARRATIVE: CASE EVENT DATE: 20240801
